FAERS Safety Report 6088676-7 (Version None)
Quarter: 2009Q1

REPORT INFORMATION
  Report Type: 
  Country: None (occurrence: None)
  Receive Date: 20090224
  Receipt Date: 20090217
  Transmission Date: 20090719
  Serious: Yes (Other)
  Sender: FDA-Public Use
  Company Number: DE-BRISTOL-MYERS SQUIBB COMPANY-14509137

PATIENT
  Age: 55 Year
  Sex: Female
  Weight: 73 kg

DRUGS (3)
  1. PACLITAXEL [Suspect]
     Indication: BREAST CANCER
     Route: 042
     Dates: start: 20060509, end: 20060509
  2. EPIRUBICIN [Suspect]
     Indication: BREAST CANCER
     Dosage: THERAPY STARTED ON 15MAR06.
     Route: 042
     Dates: start: 20060315, end: 20060412
  3. EPOETIN BETA [Concomitant]
     Route: 058
     Dates: start: 20060315, end: 20060516

REACTIONS (3)
  - AORTITIS [None]
  - ARTERITIS [None]
  - POLYSEROSITIS [None]
